FAERS Safety Report 4832011-6 (Version None)
Quarter: 2005Q4

REPORT INFORMATION
  Report Type: 
  Country: None (occurrence: None)
  Receive Date: 20051118
  Receipt Date: 20051109
  Transmission Date: 20060501
  Serious: Yes (Life-Threatening, Hospitalization, Other)
  Sender: FDA-Public Use
  Company Number: JP-JNJFOC-20050905501

PATIENT
  Age: 88 Year
  Sex: Male

DRUGS (11)
  1. RISPERDAL [Suspect]
     Route: 048
  2. RISPERDAL [Suspect]
     Route: 048
  3. THEOPHYLLINE [Concomitant]
     Route: 048
  4. NITRAZEPAM [Concomitant]
     Route: 048
  5. NIFEDIPINE [Concomitant]
     Route: 048
  6. BUNAZOSIN HYDROCHLORIDE [Concomitant]
     Route: 048
  7. DISTIGMINE BROMIDE [Concomitant]
     Route: 048
  8. CHLORMADINONE ACETATE TAB [Concomitant]
     Route: 048
  9. DISOPYRAMIDE [Concomitant]
     Route: 048
  10. PRAVASTATIN SODIUM [Concomitant]
     Route: 048
  11. FAMOTIDINE [Concomitant]
     Route: 048

REACTIONS (1)
  - ACUTE RESPIRATORY FAILURE [None]
